FAERS Safety Report 5113999-5 (Version None)
Quarter: 2006Q3

REPORT INFORMATION
  Report Type: 
  Country: None (occurrence: None)
  Receive Date: 20060921
  Receipt Date: 20060905
  Transmission Date: 20061208
  Serious: No
  Sender: FDA-Public Use
  Company Number: TPA2006A01585

PATIENT
  Sex: Male

DRUGS (1)
  1. ROZEREM [Suspect]
     Dosage: 24 MG, HS, PER ORAL
     Route: 048

REACTIONS (1)
  - NO ADVERSE DRUG EFFECT [None]
